FAERS Safety Report 20169088 (Version 3)
Quarter: 2022Q1

REPORT INFORMATION
  Report Type: Spontaneous
  Country: US (occurrence: US)
  Receive Date: 20211210
  Receipt Date: 20220307
  Transmission Date: 20220423
  Serious: Yes (Other)
  Sender: FDA-Public Use
  Company Number: US-BAYER-2021A265559

PATIENT
  Sex: Female
  Weight: 151 kg

DRUGS (1)
  1. MIRENA [Suspect]
     Active Substance: LEVONORGESTREL
     Indication: Contraception
     Dosage: 20?G/DAY
     Route: 015
     Dates: start: 20211115, end: 20211202

REACTIONS (2)
  - Uterine perforation [Recovered/Resolved]
  - Device use issue [None]

NARRATIVE: CASE EVENT DATE: 20210101
